FAERS Safety Report 12651840 (Version 1)
Quarter: 2016Q3

REPORT INFORMATION
  Report Type: Spontaneous
  Country: US (occurrence: US)
  Receive Date: 20160815
  Receipt Date: 20160815
  Transmission Date: 20161109
  Serious: No
  Sender: FDA-Public Use
  Company Number: US-BEH-2016072459

PATIENT
  Sex: Female
  Weight: 70.3 kg

DRUGS (16)
  1. HIZENTRA [Suspect]
     Active Substance: HUMAN IMMUNOGLOBULIN G
     Indication: IMMUNODEFICIENCY COMMON VARIABLE
     Dosage: 5 G, QW
     Route: 058
     Dates: start: 20130207
  2. TYLENOL [Concomitant]
     Active Substance: ACETAMINOPHEN
  3. DIPHENHYDRAMINE. [Concomitant]
     Active Substance: DIPHENHYDRAMINE
  4. ZYRTEC [Concomitant]
     Active Substance: CETIRIZINE HYDROCHLORIDE
  5. PROCARDIA [Concomitant]
     Active Substance: NIFEDIPINE
  6. SINGULAIR [Concomitant]
     Active Substance: MONTELUKAST SODIUM
  7. ADVIL (MEFENAMIC ACID) [Concomitant]
     Active Substance: MEFENAMIC ACID
  8. BONIVA [Concomitant]
     Active Substance: IBANDRONATE SODIUM
  9. ULTRAM [Concomitant]
     Active Substance: TRAMADOL HYDROCHLORIDE
  10. VITAMIN D                          /00107901/ [Concomitant]
     Active Substance: ERGOCALCIFEROL
  11. CALCIUM [Concomitant]
     Active Substance: CALCIUM
  12. MULTIVITAMIN                       /00097801/ [Concomitant]
     Active Substance: VITAMINS
  13. GLUCOSAMINE [Concomitant]
     Active Substance: GLUCOSAMINE
  14. HYDROCHLOROTHIAZIDE. [Concomitant]
     Active Substance: HYDROCHLOROTHIAZIDE
  15. NEXIUM [Concomitant]
     Active Substance: ESOMEPRAZOLE MAGNESIUM
  16. EPIPEN [Concomitant]
     Active Substance: EPINEPHRINE

REACTIONS (1)
  - Sinusitis [Unknown]
